FAERS Safety Report 7497557-3 (Version None)
Quarter: 2011Q2

REPORT INFORMATION
  Report Type: 
  Country: None (occurrence: None)
  Receive Date: 20110523
  Receipt Date: 20110516
  Transmission Date: 20111010
  Serious: Yes (Other)
  Sender: FDA-Public Use
  Company Number: FR-PFIZER INC-2011105073

PATIENT
  Age: 53 Year
  Sex: Female

DRUGS (6)
  1. VORICONAZOLE [Suspect]
     Dosage: 200 MG, 2X/DAY
  2. CASPOFUNGIN [Concomitant]
     Dosage: UNK
  3. CASPOFUNGIN [Concomitant]
     Dosage: UNK
  4. VORICONAZOLE [Suspect]
     Indication: BRONCHOPULMONARY ASPERGILLOSIS
     Dosage: 400 MG, 2X/DAY
     Route: 048
  5. IMIPENEM [Concomitant]
     Dosage: 500 MG, 3X/DAY
  6. VANCOMYCIN [Concomitant]
     Dosage: 1500 MG, 1X/DAY
     Route: 042

REACTIONS (2)
  - FEBRILE NEUTROPENIA [None]
  - LIVER DISORDER [None]
